FAERS Safety Report 4866996-9 (Version None)
Quarter: 2005Q4

REPORT INFORMATION
  Report Type: 
  Country: None (occurrence: None)
  Receive Date: 20051227
  Receipt Date: 20050606
  Transmission Date: 20060501
  Serious: Yes (Hospitalization)
  Sender: FDA-Public Use
  Company Number: US-MERCK-0506USA01143

PATIENT
  Sex: Female
  Weight: 80 kg

DRUGS (20)
  1. VIOXX [Suspect]
     Indication: PAIN
     Route: 048
     Dates: start: 20001129, end: 20030403
  2. OXYCONTIN [Concomitant]
     Route: 065
  3. VERAPAMIL [Concomitant]
     Route: 065
  4. TIZANIDINE HYDROCHLORIDE [Concomitant]
     Route: 065
  5. AMBIEN [Concomitant]
     Route: 065
  6. PAXIL [Concomitant]
     Route: 065
  7. ALPRAZOLAM [Concomitant]
     Route: 065
  8. SINGULAIR [Concomitant]
     Route: 065
  9. MACROBID [Concomitant]
     Route: 065
  10. PRILOSEC [Concomitant]
     Route: 065
  11. UNIVASC [Concomitant]
     Route: 065
  12. DURAGESIC-100 [Concomitant]
     Route: 065
  13. DIPHENOXYLATE [Concomitant]
     Route: 065
  14. ULTRACET [Concomitant]
     Route: 065
  15. ZANAFLEX [Concomitant]
     Route: 065
  16. ZYRTEC [Concomitant]
     Route: 065
  17. NEURONTIN [Concomitant]
     Route: 065
  18. PHENERGAN (PROMETHAZINE HYDROCHLORIDE) [Concomitant]
     Route: 065
  19. TRIMETOPRIM-SULFA [Concomitant]
     Route: 065
  20. CELEBREX [Suspect]
     Route: 065

REACTIONS (2)
  - INTERVERTEBRAL DISC PROTRUSION [None]
  - MYOCARDIAL INFARCTION [None]
